FAERS Safety Report 17719123 (Version 2)
Quarter: 2020Q3

REPORT INFORMATION
  Report Type: Spontaneous
  Country: US (occurrence: US)
  Receive Date: 20200428
  Receipt Date: 20200703
  Transmission Date: 20201102
  Serious: Yes (Other)
  Sender: FDA-Public Use
  Company Number: US-PFIZER INC-2020170079

PATIENT
  Age: 24 Year
  Sex: Male
  Weight: 97.05 kg

DRUGS (2)
  1. XELJANZ XR [Suspect]
     Active Substance: TOFACITINIB CITRATE
     Dosage: 11 MG, DAILY
     Route: 048
     Dates: start: 202002
  2. XELJANZ XR [Suspect]
     Active Substance: TOFACITINIB CITRATE
     Indication: COLITIS ULCERATIVE
     Dosage: 22 MG, DAILY
     Route: 048
     Dates: start: 202002

REACTIONS (6)
  - Product dose omission issue [Unknown]
  - Condition aggravated [Unknown]
  - Mucous stools [Unknown]
  - Frequent bowel movements [Unknown]
  - Contusion [Unknown]
  - Haematochezia [Unknown]
